FAERS Safety Report 7052850-3 (Version None)
Quarter: 2010Q4

REPORT INFORMATION
  Report Type: 
  Country: None (occurrence: None)
  Receive Date: 20101019
  Receipt Date: 20101006
  Transmission Date: 20110411
  Serious: Yes (Other)
  Sender: FDA-Public Use
  Company Number: JP-MYLANLABS-2010S1018761

PATIENT
  Age: 6 Decade
  Sex: Male

DRUGS (8)
  1. TRETINOIN [Suspect]
     Indication: ACUTE PROMYELOCYTIC LEUKAEMIA
     Route: 065
  2. IDARUBICIN HCL [Suspect]
     Indication: ACUTE PROMYELOCYTIC LEUKAEMIA
     Route: 065
  3. IDARUBICIN HCL [Suspect]
     Route: 065
     Dates: end: 20011001
  4. CYTARABINE [Suspect]
     Indication: ACUTE PROMYELOCYTIC LEUKAEMIA
     Route: 065
  5. MITOXANTRONE [Suspect]
     Route: 065
     Dates: end: 20011001
  6. DAUNORUBICIN HCL [Suspect]
     Route: 065
     Dates: end: 20011001
  7. ACLARUBICIN [Suspect]
     Route: 065
     Dates: end: 20011001
  8. ETOPOSIDE [Suspect]
     Route: 065
     Dates: end: 20011001

REACTIONS (1)
  - CHRONIC MYELOMONOCYTIC LEUKAEMIA [None]
